FAERS Safety Report 6558274-7 (Version None)
Quarter: 2010Q1

REPORT INFORMATION
  Report Type: 
  Country: None (occurrence: None)
  Receive Date: 20100128
  Receipt Date: 20100128
  Transmission Date: 20100710
  Serious: Yes (Other)
  Sender: FDA-Public Use
  Company Number: None

PATIENT
  Age: 54 Year
  Sex: Female
  Weight: 146.9654 kg

DRUGS (2)
  1. QUETIAPINE [Suspect]
     Dosage: 25 MG 1 - TWICE A DAY
     Dates: start: 20091109
  2. QUETIAPINE [Suspect]
     Dosage: 25 MG 1 - TWICE A DAY
     Dates: start: 20091212

REACTIONS (3)
  - ABNORMAL DREAMS [None]
  - ANXIETY [None]
  - PRODUCT SUBSTITUTION ISSUE [None]
